FAERS Safety Report 17620171 (Version 1)
Quarter: 2020Q2

REPORT INFORMATION
  Report Type: Spontaneous
  Country: CN (occurrence: CN)
  Receive Date: 20200403
  Receipt Date: 20200403
  Transmission Date: 20200713
  Serious: Yes (Hospitalization)
  Sender: FDA-Public Use
  Company Number: CN-TERSERA THERAPEUTICS LLC-2020TRS000797

PATIENT

DRUGS (7)
  1. AVASTIN [Suspect]
     Active Substance: BEVACIZUMAB
     Indication: BREAST CANCER
     Dosage: 100MG/4ML ONE BOTTLE
     Route: 041
     Dates: start: 20200217, end: 20200217
  2. PARAPLATIN [Suspect]
     Active Substance: CARBOPLATIN
     Dosage: 150MG/15ML ONE BRANCH, 300 MG DAILY
     Route: 041
     Dates: start: 20200224, end: 20200224
  3. PARAPLATIN [Suspect]
     Active Substance: CARBOPLATIN
     Indication: BREAST CANCER
     Dosage: 150MG/15ML ONE BRANCH, 300 MG DAILY
     Route: 041
     Dates: start: 20200217, end: 20200217
  4. GLUCOSE [Concomitant]
     Active Substance: DEXTROSE
     Indication: PRODUCT USED FOR UNKNOWN INDICATION
     Dosage: 250.0ML UNKNOWN
     Route: 065
     Dates: start: 20200217
  5. ZOLADEX [Suspect]
     Active Substance: GOSERELIN ACETATE
     Indication: BREAST CANCER
     Dosage: 3.6MG UNKNOWN
     Route: 058
     Dates: start: 20200217, end: 20200217
  6. SODIUM CHLORIDE. [Concomitant]
     Active Substance: SODIUM CHLORIDE
     Indication: PRODUCT USED FOR UNKNOWN INDICATION
     Dosage: 250.0ML UNKNOWN
     Route: 065
     Dates: start: 20200217
  7. OLAPARIB. [Suspect]
     Active Substance: OLAPARIB
     Indication: BREAST CANCER
     Dosage: 150 MILLIGRAM, BID
     Route: 048
     Dates: start: 20200217, end: 20200304

REACTIONS (1)
  - Bone marrow failure [Recovering/Resolving]

NARRATIVE: CASE EVENT DATE: 20200304
